FAERS Safety Report 12447117 (Version 4)
Quarter: 2016Q4

REPORT INFORMATION
  Report Type: Report from Study
  Country: US (occurrence: US)
  Receive Date: 20160608
  Receipt Date: 20161004
  Transmission Date: 20170207
  Serious: Yes (Life-Threatening, Hospitalization, Other)
  Sender: FDA-Public Use
  Company Number: US-AMGEN-USASL2016059035

PATIENT
  Age: 63 Year
  Sex: Female

DRUGS (1)
  1. NPLATE [Suspect]
     Active Substance: ROMIPLOSTIM
     Indication: IMMUNE THROMBOCYTOPENIC PURPURA
     Dosage: UNK UNK, QWK
     Route: 065
     Dates: start: 2011

REACTIONS (34)
  - Vomiting [Unknown]
  - Organ failure [Unknown]
  - Abscess limb [Unknown]
  - Depression [Unknown]
  - Platelet transfusion [Unknown]
  - Wheelchair user [Not Recovered/Not Resolved]
  - Limb injury [Unknown]
  - Rehabilitation therapy [Unknown]
  - Activities of daily living impaired [Unknown]
  - Pyrexia [Unknown]
  - Sepsis [Unknown]
  - Sinus disorder [Unknown]
  - Cyst [Unknown]
  - Nasopharyngitis [Unknown]
  - Fatigue [Unknown]
  - Headache [Unknown]
  - Localised infection [Unknown]
  - Petechiae [Unknown]
  - Platelet count decreased [Recovering/Resolving]
  - Arthralgia [Unknown]
  - Drug effect incomplete [Unknown]
  - Hernia [Unknown]
  - Fall [Unknown]
  - Post-traumatic stress disorder [Unknown]
  - Hot flush [Unknown]
  - Chills [Unknown]
  - Gait disturbance [Recovered/Resolved]
  - Knee operation [Unknown]
  - Drug ineffective [Unknown]
  - Feeling cold [Unknown]
  - Feeling abnormal [Not Recovered/Not Resolved]
  - Cough [Unknown]
  - Walking aid user [Unknown]
  - Contusion [Unknown]

NARRATIVE: CASE EVENT DATE: 2015
